FAERS Safety Report 19444163 (Version 1)
Quarter: 2021Q2

REPORT INFORMATION
  Report Type: Spontaneous
  Country: AU (occurrence: AU)
  Receive Date: 20210621
  Receipt Date: 20210621
  Transmission Date: 20210717
  Serious: Yes (Other)
  Sender: FDA-Public Use
  Company Number: AU-FRESENIUS KABI-FK202106310

PATIENT
  Age: 40 Year
  Sex: Female

DRUGS (1)
  1. TERBUTALINE INJECTION (MANUFACTURER UNKNOWN) [Suspect]
     Active Substance: TERBUTALINE SULFATE
     Indication: FOETAL DISTRESS SYNDROME
     Route: 065

REACTIONS (2)
  - Intestinal pseudo-obstruction [Unknown]
  - Exposure during pregnancy [Recovered/Resolved]
